FAERS Safety Report 9549703 (Version 1)
Quarter: 2013Q3

REPORT INFORMATION
  Report Type: Spontaneous
  Country: US (occurrence: None)
  Receive Date: 20130719
  Receipt Date: 20130719
  Transmission Date: 20140515
  Serious: Yes (Hospitalization)
  Sender: FDA-Public Use
  Company Number: 2012BAX02410

PATIENT
  Age: 48 Year
  Sex: Male

DRUGS (3)
  1. CYCLOPHOSPHAMIDE [Suspect]
     Indication: CHRONIC LYMPHOCYTIC LEUKAEMIA
     Dosage: STRENGTH 1000MG/250 ML (1400 MG, 1 IN 21 D)
     Route: 042
     Dates: start: 20100615, end: 20101130
  2. RITUXAN [Suspect]
     Indication: CHRONIC LYMPHOCYTIC LEUKAEMIA
     Dosage: STRENGTH 1-4 MG/ML IN NS (870 MG, 1 21 D)
     Route: 042
     Dates: start: 20100615, end: 20120621
  3. PENTOSTATIN [Suspect]
     Indication: CHRONIC LYMPHOCYTIC LEUKAEMIA
     Dosage: 1 IN 21 D
     Route: 042
     Dates: start: 20100615, end: 20101130

REACTIONS (2)
  - Neutropenia [None]
  - Pyrexia [None]
